FAERS Safety Report 4693300-1 (Version None)
Quarter: 2005Q2

REPORT INFORMATION
  Report Type: 
  Country: None (occurrence: None)
  Receive Date: 20050617
  Receipt Date: 20050606
  Transmission Date: 20051028
  Serious: Yes (Hospitalization)
  Sender: FDA-Public Use
  Company Number: FR-GLAXOSMITHKLINE-B0384346A

PATIENT
  Sex: Male

DRUGS (2)
  1. ARIXTRA [Suspect]
     Route: 058
     Dates: start: 20050501, end: 20050501
  2. ANALGESIC [Concomitant]
     Route: 048
     Dates: start: 20050501

REACTIONS (3)
  - CHEST PAIN [None]
  - PHLEBITIS [None]
  - PULMONARY EMBOLISM [None]
